FAERS Safety Report 4505597-9 (Version None)
Quarter: 2004Q4

REPORT INFORMATION
  Report Type: 
  Country: None (occurrence: None)
  Receive Date: 20041119
  Receipt Date: 20040910
  Transmission Date: 20050328
  Serious: No
  Sender: FDA-Public Use
  Company Number: US-GLAXOSMITHKLINE-A0525254A

PATIENT
  Age: 22 Year
  Sex: Female

DRUGS (4)
  1. LOTRONEX [Suspect]
     Indication: IRRITABLE BOWEL SYNDROME
     Dosage: 1MG PER DAY
     Route: 048
     Dates: start: 20030101
  2. PHENERGAN [Concomitant]
  3. EFFEXOR [Concomitant]
  4. ACIPHEX [Concomitant]

REACTIONS (1)
  - WEIGHT INCREASED [None]
